FAERS Safety Report 14580278 (Version 1)
Quarter: 2018Q1

REPORT INFORMATION
  Report Type: Spontaneous
  Country: TH (occurrence: TH)
  Receive Date: 20180228
  Receipt Date: 20180228
  Transmission Date: 20180509
  Serious: No
  Sender: FDA-Public Use
  Company Number: TH-LUPIN PHARMACEUTICALS INC.-2017-06869

PATIENT
  Age: 30 Year
  Sex: Female

DRUGS (1)
  1. TRIAMCINOLONE ACETONIDE. [Suspect]
     Active Substance: TRIAMCINOLONE ACETONIDE
     Indication: FIBROMATOSIS
     Dosage: 52 MG, UNK
     Route: 026

REACTIONS (2)
  - Hypothalamic pituitary adrenal axis suppression [Unknown]
  - Impaired fasting glucose [Recovered/Resolved]
